FAERS Safety Report 14238685 (Version 13)
Quarter: 2018Q2

REPORT INFORMATION
  Report Type: Report from Study
  Country: GB (occurrence: GB)
  Receive Date: 20171130
  Receipt Date: 20180618
  Transmission Date: 20180711
  Serious: Yes (Hospitalization, Other)
  Sender: FDA-Public Use
  Company Number: GB-EISAI MEDICAL RESEARCH-EC-2017-033485

PATIENT
  Age: 13 Year
  Sex: Male
  Weight: 54.7 kg

DRUGS (21)
  1. LENVATINIB [Suspect]
     Active Substance: LENVATINIB
     Route: 048
     Dates: start: 20171114, end: 20171205
  2. LENVATINIB [Suspect]
     Active Substance: LENVATINIB
     Route: 048
     Dates: start: 20171207, end: 20180125
  3. MORPHINE MS/ SEVREDOL [Concomitant]
  4. NABILONE [Concomitant]
     Active Substance: NABILONE
  5. LORAZEPAM. [Concomitant]
     Active Substance: LORAZEPAM
  6. APREPITANT. [Concomitant]
     Active Substance: APREPITANT
  7. PARACETAMOL [Concomitant]
     Active Substance: ACETAMINOPHEN
  8. LENVATINIB [Suspect]
     Active Substance: LENVATINIB
     Route: 048
     Dates: start: 20170927, end: 20171113
  9. ONDANSETRON [Concomitant]
     Active Substance: ONDANSETRON
  10. LENVATINIB [Suspect]
     Active Substance: LENVATINIB
     Route: 048
     Dates: start: 20180212, end: 20180218
  11. DOCUSATE [Concomitant]
     Active Substance: DOCUSATE
  12. ENALAPRIL [Concomitant]
     Active Substance: ENALAPRIL
  13. IFOSFAMIDE. [Suspect]
     Active Substance: IFOSFAMIDE
     Indication: OSTEOSARCOMA RECURRENT
     Route: 041
     Dates: start: 20170911, end: 20171204
  14. DEXAMETHASONE. [Concomitant]
     Active Substance: DEXAMETHASONE
  15. METOCLOPRAMIDE. [Concomitant]
     Active Substance: METOCLOPRAMIDE
  16. LENVATINIB [Suspect]
     Active Substance: LENVATINIB
     Indication: OSTEOSARCOMA RECURRENT
     Route: 048
     Dates: start: 20170911, end: 20170921
  17. LENVATINIB [Suspect]
     Active Substance: LENVATINIB
     Route: 048
     Dates: start: 20180313, end: 20180404
  18. ETOPOSIDE. [Suspect]
     Active Substance: ETOPOSIDE
     Indication: OSTEOSARCOMA RECURRENT
     Route: 041
     Dates: start: 20170911, end: 20171205
  19. GABAPENTIN. [Concomitant]
     Active Substance: GABAPENTIN
  20. MOVICOL [Concomitant]
     Active Substance: POLYETHYLENE GLYCOL 3350\POTASSIUM CHLORIDE\SODIUM BICARBONATE\SODIUM CHLORIDE
  21. CYCLIZINE [Concomitant]
     Active Substance: CYCLIZINE

REACTIONS (6)
  - Diarrhoea [Recovered/Resolved]
  - Toxic encephalopathy [Recovered/Resolved]
  - Epistaxis [Recovered/Resolved]
  - Vomiting [Recovered/Resolved]
  - Febrile neutropenia [Recovered/Resolved]
  - Stomatitis [Recovered/Resolved]

NARRATIVE: CASE EVENT DATE: 20171124
